FAERS Safety Report 8289909-9 (Version None)
Quarter: 2012Q2

REPORT INFORMATION
  Report Type: 
  Country: None (occurrence: None)
  Receive Date: 20120417
  Receipt Date: 20120405
  Transmission Date: 20120825
  Serious: Yes (Life-Threatening)
  Sender: FDA-Public Use
  Company Number: DE-FRI-1000029795

PATIENT
  Age: 47 Year
  Sex: Male
  Weight: 66 kg

DRUGS (6)
  1. LAMOTRIGINE [Concomitant]
     Indication: BIPOLAR II DISORDER
     Dosage: 200 MG
     Dates: start: 20080101
  2. CITALOPRAM HYDROBROMIDE [Suspect]
     Indication: DEPRESSION
     Dosage: OVERDOSE: 60 MG (PRESCRIBED)
     Route: 048
     Dates: start: 20110902, end: 20111018
  3. MIRTAZAPINE [Concomitant]
     Indication: DEPRESSION
     Dosage: 30 MG
     Dates: start: 20030101
  4. ESCITALOPRAM [Concomitant]
     Indication: DEPRESSION
     Dosage: 20 MG
  5. DIAZEPAM [Concomitant]
     Indication: TENSION
     Dosage: 5 MG
     Dates: start: 20070101
  6. BACLOFEN [Concomitant]
     Indication: ALCOHOL ABUSE
     Dosage: 25 MG AS NEEDED
     Dates: start: 20110501

REACTIONS (5)
  - PRODUCT SUBSTITUTION ISSUE [None]
  - DEPRESSION [None]
  - OVERDOSE [None]
  - NAUSEA [None]
  - SUICIDAL IDEATION [None]
